FAERS Safety Report 12637052 (Version 1)
Quarter: 2016Q3

REPORT INFORMATION
  Report Type: Not Available
  Country: US (occurrence: US)
  Receive Date: 20160809
  Receipt Date: 20160809
  Transmission Date: 20161109
  Serious: Yes (Other)
  Sender: FDA-Public Use
  Company Number: US-BEH-2014042271

PATIENT
  Age: 64 Year
  Sex: Female
  Weight: 74 kg

DRUGS (13)
  1. PRIVIGEN [Suspect]
     Active Substance: HUMAN IMMUNOGLOBULIN G
     Dosage: 10 GM: 30 GM TOTAL IN 3-4 HOURS
     Route: 042
     Dates: start: 20130816
  2. PRIVIGEN [Suspect]
     Active Substance: HUMAN IMMUNOGLOBULIN G
     Dosage: 2ND DOSE IN DEC2012; 25 GM
     Route: 042
  3. LOSARTAN. [Concomitant]
     Active Substance: LOSARTAN
  4. LEVOTHYROXINE. [Concomitant]
     Active Substance: LEVOTHYROXINE
  5. XANAX [Concomitant]
     Active Substance: ALPRAZOLAM
     Dosage: XR
  6. CYMBALTA [Concomitant]
     Active Substance: DULOXETINE HYDROCHLORIDE
  7. PRIVIGEN [Suspect]
     Active Substance: HUMAN IMMUNOGLOBULIN G
     Dosage: 10 GM: 30 GM TOTAL IN 3-4 HOURS
     Route: 042
     Dates: start: 20130816
  8. ADVAIR HFA [Concomitant]
     Active Substance: FLUTICASONE PROPIONATE\SALMETEROL XINAFOATE
  9. NASONEX [Concomitant]
     Active Substance: MOMETASONE FUROATE
     Route: 045
  10. ADVAIR HFA [Concomitant]
     Active Substance: FLUTICASONE PROPIONATE\SALMETEROL XINAFOATE
  11. PRIVIGEN [Suspect]
     Active Substance: HUMAN IMMUNOGLOBULIN G
     Indication: HYPOGAMMAGLOBULINAEMIA
     Dosage: 20 GM: 30 GM TOTAL OVER 3-4 HOURS
     Route: 042
     Dates: start: 20130816
  12. PRIVIGEN [Suspect]
     Active Substance: HUMAN IMMUNOGLOBULIN G
     Dosage: 20 GM: 30 GM TOTAL, INFUSE 3-4 HOURS (3RD DOSE)
     Route: 042
     Dates: start: 20130816
  13. PRIVIGEN [Suspect]
     Active Substance: HUMAN IMMUNOGLOBULIN G
     Dosage: 1ST DOSE IN NOV2012; 25 GM
     Route: 042

REACTIONS (5)
  - Rash maculo-papular [Unknown]
  - Skin exfoliation [Unknown]
  - Rash pruritic [Unknown]
  - Pityriasis rosea [Unknown]
  - Rash maculo-papular [Unknown]

NARRATIVE: CASE EVENT DATE: 2013
